FAERS Safety Report 6173931-2 (Version None)
Quarter: 2009Q2

REPORT INFORMATION
  Report Type: 
  Country: None (occurrence: None)
  Receive Date: 20090430
  Receipt Date: 20090423
  Transmission Date: 20091009
  Serious: Yes (Hospitalization)
  Sender: FDA-Public Use
  Company Number: US-ELI_LILLY_AND_COMPANY-US200903001068

PATIENT
  Sex: Male
  Weight: 89.342 kg

DRUGS (19)
  1. ALIMTA [Suspect]
     Indication: NON-SMALL CELL LUNG CANCER
     Dates: start: 20090216
  2. AVASTIN [Concomitant]
     Indication: NON-SMALL CELL LUNG CANCER
     Dates: start: 20090216
  3. ENZASTAURIN (LY317615) [Concomitant]
     Indication: NON-SMALL CELL LUNG CANCER
     Dosage: 1125 MG, DAY 1
     Route: 048
     Dates: start: 20081008
  4. ENZASTAURIN (LY317615) [Concomitant]
     Dosage: 500 MG, DAILY (1/D)
     Route: 048
  5. ERLOTINIB [Concomitant]
     Indication: NON-SMALL CELL LUNG CANCER
     Dosage: 150 MG, DAILY (1/D)
     Route: 048
     Dates: start: 20081008, end: 20090206
  6. CARDURA [Concomitant]
     Indication: CARDIOVASCULAR DISORDER
     Dates: start: 20050601
  7. ASPIRIN [Concomitant]
     Indication: CARDIOVASCULAR DISORDER
     Dates: start: 20040501
  8. IMODIUM [Concomitant]
     Indication: DIARRHOEA
     Dates: start: 20071001
  9. PHENERGAN [Concomitant]
     Indication: NAUSEA
     Dates: start: 20071111
  10. COMBIVENT [Concomitant]
     Indication: DYSPNOEA
     Dates: start: 20080625
  11. ADVAIR HFA [Concomitant]
     Indication: DYSPNOEA
     Dates: start: 20080625
  12. DULCOLAX [Concomitant]
     Indication: CONSTIPATION
     Dates: start: 20071001
  13. CRESTOR [Concomitant]
     Indication: HYPERCHOLESTEROLAEMIA
     Dates: start: 19980301
  14. HYDROCODONE BITARTRATE [Concomitant]
     Indication: PAIN
     Dates: start: 20060301
  15. DYAZIDE [Concomitant]
     Indication: HYPERTENSION
     Dates: start: 19980601
  16. PREDNISONE [Concomitant]
     Indication: APPETITE DISORDER
     Dates: start: 20081022
  17. MEGESTROL ACETATE [Concomitant]
     Indication: APPETITE DISORDER
     Dates: start: 20081231
  18. VITAMIN B-12 [Concomitant]
     Indication: SUPPLEMENTATION THERAPY
  19. FOLIC ACID [Concomitant]
     Indication: SUPPLEMENTATION THERAPY

REACTIONS (5)
  - CONSTIPATION [None]
  - DEHYDRATION [None]
  - DISEASE PROGRESSION [None]
  - HYPOTENSION [None]
  - TACHYCARDIA [None]
